FAERS Safety Report 8488904-4 (Version None)
Quarter: 2012Q2

REPORT INFORMATION
  Report Type: 
  Country: None (occurrence: None)
  Receive Date: 20120626
  Receipt Date: 20120621
  Transmission Date: 20120825
  Serious: Yes (Death, Hospitalization)
  Sender: FDA-Public Use
  Company Number: 2012SP034548

PATIENT
  Age: 63 Year
  Sex: Female
  Weight: 63 kg

DRUGS (8)
  1. IMODIUM [Concomitant]
  2. REBETOL [Suspect]
     Indication: HEPATITIS C
     Dosage: 800 MG;QD
     Dates: start: 20120112
  3. XANAX [Concomitant]
  4. VIRAFERONPEG [Suspect]
     Indication: HEPATITIS C
     Dosage: 80 MCG;QW
     Dates: start: 20120112
  5. VOLTAREN [Concomitant]
  6. ALUMINUM HYDROXIDE AND MAGNESIUM TRISILICATE [Concomitant]
  7. VICTRELIS [Suspect]
     Indication: HEPATITIS C
     Dosage: 800 MG;TID
     Dates: start: 20120209
  8. VITAMIN D [Concomitant]

REACTIONS (39)
  - DYSPNOEA [None]
  - HAEMOPTYSIS [None]
  - PLEURAL EFFUSION [None]
  - NEUTROPHIL COUNT INCREASED [None]
  - PLATELET COUNT DECREASED [None]
  - PROTEIN TOTAL INCREASED [None]
  - BLOOD CALCIUM DECREASED [None]
  - BLOOD PH DECREASED [None]
  - ABDOMINAL PAIN [None]
  - CYANOSIS [None]
  - EPISTAXIS [None]
  - TRACHEAL HAEMORRHAGE [None]
  - BLOOD CREATININE INCREASED [None]
  - RESPIRATORY DISORDER [None]
  - PETECHIAE [None]
  - WHITE BLOOD CELL COUNT INCREASED [None]
  - HAEMOGLOBIN DECREASED [None]
  - BLOOD POTASSIUM DECREASED [None]
  - BLOOD CREATINE PHOSPHOKINASE INCREASED [None]
  - TROPONIN INCREASED [None]
  - MALAISE [None]
  - BLOOD PRESSURE DECREASED [None]
  - EJECTION FRACTION DECREASED [None]
  - BLOOD UREA DECREASED [None]
  - BRADYCARDIA [None]
  - AREFLEXIA [None]
  - TREATMENT FAILURE [None]
  - HEART RATE INCREASED [None]
  - LUNG DISORDER [None]
  - PO2 DECREASED [None]
  - BLOOD BICARBONATE DECREASED [None]
  - OXYGEN SATURATION DECREASED [None]
  - BLOOD LACTIC ACID INCREASED [None]
  - GENERAL PHYSICAL HEALTH DETERIORATION [None]
  - DIARRHOEA [None]
  - CARDIO-RESPIRATORY ARREST [None]
  - BODY TEMPERATURE INCREASED [None]
  - MOUTH HAEMORRHAGE [None]
  - PCO2 INCREASED [None]
